FAERS Safety Report 5135279-4 (Version None)
Quarter: 2006Q4

REPORT INFORMATION
  Report Type: 
  Country: None (occurrence: None)
  Receive Date: 20061026
  Receipt Date: 20061018
  Transmission Date: 20070319
  Serious: Yes (Life-Threatening, Other)
  Sender: FDA-Public Use
  Company Number: US-JNJFOC-20060704331

PATIENT
  Sex: Female
  Weight: 55 kg

DRUGS (8)
  1. REMICADE [Suspect]
     Route: 042
  2. REMICADE [Suspect]
     Route: 042
  3. REMICADE [Suspect]
     Indication: RHEUMATOID ARTHRITIS
     Dosage: ON THERAPY 8-9 YEARS
     Route: 042
  4. TOPROL-XL [Concomitant]
     Indication: HYPERTENSION
  5. TAMBOCOR [Concomitant]
     Indication: HYPERTENSION
  6. ACTONEL [Concomitant]
     Indication: OSTEOPOROSIS
  7. FOLIC ACID [Concomitant]
     Indication: RHEUMATOID ARTHRITIS
  8. NORVASC [Concomitant]
     Indication: HYPERTENSION

REACTIONS (1)
  - BREAST CANCER METASTATIC [None]
